FAERS Safety Report 8963684 (Version 2)
Quarter: 2013Q1

REPORT INFORMATION
  Report Type: Spontaneous
  Country: SG (occurrence: SG)
  Receive Date: 20121214
  Receipt Date: 20130104
  Transmission Date: 20140127
  Serious: Yes (Death, Hospitalization)
  Sender: FDA-Public Use
  Company Number: SG-SANOFI-AVENTIS-2012SA090063

PATIENT
  Age: 66 Year
  Sex: Male
  Weight: 59.3 kg

DRUGS (4)
  1. TAXOTERE [Suspect]
     Indication: PROSTATE CANCER
     Route: 042
     Dates: start: 20120717, end: 20120917
  2. METFORMIN [Concomitant]
  3. SITAGLIPTIN PHOSPHATE [Concomitant]
  4. GLICLAZIDE [Concomitant]

REACTIONS (4)
  - Pneumonitis [Fatal]
  - Dyspnoea [Fatal]
  - Cardiopulmonary failure [Fatal]
  - Condition aggravated [Fatal]
